FAERS Safety Report 24806130 (Version 1)
Quarter: 2025Q1

REPORT INFORMATION
  Report Type: Spontaneous
  Country: US (occurrence: None)
  Receive Date: 20250103
  Receipt Date: 20250103
  Transmission Date: 20250409
  Serious: No
  Sender: FDA-CTU
  Company Number: None

PATIENT
  Age: 64 Year
  Sex: Female
  Weight: 100.35 kg

DRUGS (4)
  1. REZDIFFRA [Suspect]
     Active Substance: RESMETIROM
     Indication: Liver disorder
     Dosage: 30 TABLETS DAILY ORAL
     Route: 048
     Dates: start: 20241210, end: 20241226
  2. AMLODIPINE [Concomitant]
     Active Substance: AMLODIPINE BESYLATE
  3. HYDROCHLOROTHIAZIDE [Concomitant]
     Active Substance: HYDROCHLOROTHIAZIDE
  4. LOSARTAN [Concomitant]
     Active Substance: LOSARTAN

REACTIONS (5)
  - Abdominal pain upper [None]
  - Constipation [None]
  - Nausea [None]
  - Insomnia [None]
  - Hypophagia [None]

NARRATIVE: CASE EVENT DATE: 20241211
